FAERS Safety Report 24376598 (Version 2)
Quarter: 2024Q4

REPORT INFORMATION
  Report Type: Spontaneous
  Country: CN (occurrence: CN)
  Receive Date: 20240930
  Receipt Date: 20241010
  Transmission Date: 20250114
  Serious: Yes (Other)
  Sender: BAYER
  Company Number: CN-BAYER-2024A138190

PATIENT
  Age: 30 Year
  Sex: Male

DRUGS (3)
  1. ULTRAVIST [Suspect]
     Active Substance: IOPROMIDE
     Indication: Perfusion brain scan
     Dosage: 76.88 G, ONCE
     Route: 042
     Dates: start: 20240922, end: 20240922
  2. ULTRAVIST [Suspect]
     Active Substance: IOPROMIDE
     Indication: Angiogram cerebral
  3. ULTRAVIST [Suspect]
     Active Substance: IOPROMIDE
     Indication: Arteriogram carotid

REACTIONS (7)
  - Vomiting [Recovered/Resolved]
  - Sneezing [Recovered/Resolved]
  - Blood pressure increased [Recovering/Resolving]
  - Lacrimation increased [Not Recovered/Not Resolved]
  - Respiratory rate increased [Not Recovered/Not Resolved]
  - Heart rate decreased [Not Recovered/Not Resolved]
  - PO2 decreased [Recovered/Resolved]

NARRATIVE: CASE EVENT DATE: 20240922
